FAERS Safety Report 25149345 (Version 4)
Quarter: 2025Q2

REPORT INFORMATION
  Report Type: Spontaneous
  Country: JP (occurrence: JP)
  Receive Date: 20250402
  Receipt Date: 20250403
  Transmission Date: 20250717
  Serious: Yes (Other)
  Sender: STRIDES
  Company Number: JP-STRIDES ARCOLAB LIMITED-2025SP004095

PATIENT
  Age: 13 Year

DRUGS (8)
  1. TACROLIMUS [Suspect]
     Active Substance: TACROLIMUS
     Indication: Optic neuritis
     Route: 065
  2. TACROLIMUS [Suspect]
     Active Substance: TACROLIMUS
     Indication: Anti-aquaporin-4 antibody positive
  3. CYCLOSPORINE [Suspect]
     Active Substance: CYCLOSPORINE
     Indication: Optic neuritis
     Route: 065
  4. CYCLOSPORINE [Suspect]
     Active Substance: CYCLOSPORINE
     Indication: Anti-aquaporin-4 antibody positive
  5. PREDNISOLONE [Suspect]
     Active Substance: PREDNISOLONE
     Indication: Optic neuritis
     Route: 065
  6. PREDNISOLONE [Suspect]
     Active Substance: PREDNISOLONE
     Indication: Anti-aquaporin-4 antibody positive
  7. SATRALIZUMAB [Suspect]
     Active Substance: SATRALIZUMAB
     Indication: Optic neuritis
     Route: 058
  8. SATRALIZUMAB [Suspect]
     Active Substance: SATRALIZUMAB
     Indication: Anti-aquaporin-4 antibody positive

REACTIONS (3)
  - Disease recurrence [Unknown]
  - Drug ineffective for unapproved indication [Unknown]
  - Drug ineffective [Unknown]
